FAERS Safety Report 23136350 (Version 1)
Quarter: 2023Q4

REPORT INFORMATION
  Report Type: Spontaneous
  Country: GB (occurrence: GB)
  Receive Date: 20231102
  Receipt Date: 20231102
  Transmission Date: 20240110
  Serious: Yes (Other)
  Sender: FDA-Public Use
  Company Number: None

PATIENT
  Age: 69 Year
  Sex: Male
  Weight: 111 kg

DRUGS (2)
  1. ATORVASTATIN [Suspect]
     Active Substance: ATORVASTATIN
     Indication: Type 2 diabetes mellitus
     Dosage: 1 DOSAGE FORMS DAILY; DURATION: 77 DAYS
     Route: 065
     Dates: start: 20230807, end: 20231023
  2. RILTOZINAMERAN\TOZINAMERAN [Concomitant]
     Active Substance: RILTOZINAMERAN\TOZINAMERAN
     Indication: Product used for unknown indication
     Dosage: UNIT DOSE: 0.3 ML
     Route: 030
     Dates: start: 20230916, end: 20230916

REACTIONS (4)
  - Depression [Recovering/Resolving]
  - Eating disorder [Unknown]
  - Suicidal ideation [Unknown]
  - Depressed mood [Unknown]
